FAERS Safety Report 7357048-7 (Version None)
Quarter: 2011Q1

REPORT INFORMATION
  Report Type: 
  Country: None (occurrence: None)
  Receive Date: 20110308
  Receipt Date: 20110214
  Transmission Date: 20110831
  Serious: Yes (Hospitalization, Other)
  Sender: FDA-Public Use
  Company Number: 2010FR0012

PATIENT
  Age: 10 Year
  Sex: Male

DRUGS (11)
  1. ADALAT [Concomitant]
  2. PARACETAMOL [Concomitant]
  3. BACTRIM [Concomitant]
  4. ZELITREX (VALACICLOVIR) [Suspect]
     Dosage: 4 DOSAGE FORMS (4 DOSAGE FROMS, 1 IN 1 D),
     Dates: start: 20110130
  5. NEXIUM [Concomitant]
  6. ORFADIN [Suspect]
     Indication: TYROSINAEMIA
     Dosage: 1,07 MG/KG (30 MG, 1 IN 1 D, ORAL
     Route: 048
     Dates: start: 20000413, end: 20110130
  7. TACROLIMUS [Suspect]
     Dosage: 6MG,
     Dates: start: 20110130
  8. TRIFLUCAN (FLUCONAZOLE) [Concomitant]
  9. SIMULECT [Concomitant]
  10. ASPIRIN [Concomitant]
  11. ATARAX [Concomitant]

REACTIONS (11)
  - LIVER TRANSPLANT [None]
  - ALPHA 1 FOETOPROTEIN INCREASED [None]
  - HEPATIC FIBROSIS [None]
  - TOXICITY TO VARIOUS AGENTS [None]
  - LIVER DISORDER [None]
  - AGITATION POSTOPERATIVE [None]
  - IMMUNOSUPPRESSANT DRUG LEVEL INCREASED [None]
  - HEPATIC NEOPLASM MALIGNANT [None]
  - DRUG INEFFECTIVE [None]
  - CONFUSION POSTOPERATIVE [None]
  - HALLUCINATION, VISUAL [None]
